FAERS Safety Report 10925330 (Version 1)
Quarter: 2015Q1

REPORT INFORMATION
  Report Type: Spontaneous
  Country: US (occurrence: US)
  Receive Date: 20150318
  Receipt Date: 20150318
  Transmission Date: 20150721
  Serious: No
  Sender: FDA-Public Use
  Company Number: US-PFIZER INC-2015094431

PATIENT
  Age: 83 Year
  Sex: Female
  Weight: 53.61 kg

DRUGS (20)
  1. LEVOTHYROXINE [Concomitant]
     Active Substance: LEVOTHYROXINE
     Dosage: UNK
  2. ALENDRONATE [Concomitant]
     Active Substance: ALENDRONATE SODIUM
     Dosage: UNK
  3. CEPHALEXIN. [Concomitant]
     Active Substance: CEPHALEXIN
     Indication: PROPHYLAXIS
     Dosage: UNK
  4. GABAPENTIN. [Suspect]
     Active Substance: GABAPENTIN
     Indication: PAIN
     Dosage: 100 MG, 3X/DAY
     Route: 048
     Dates: start: 20150226
  5. ESTRACE [Concomitant]
     Active Substance: ESTRADIOL
     Dosage: UNK
  6. TUMS [Concomitant]
     Active Substance: CALCIUM CARBONATE
     Dosage: UNK
  7. CHONDROITIN SULFATE (BOVINE)\GLUCOSAMINE SULFATE [Concomitant]
     Active Substance: CHONDROITIN SULFATE (BOVINE)\GLUCOSAMINE SULFATE
     Dosage: UNK
  8. PRAVASTATIN [Concomitant]
     Active Substance: PRAVASTATIN\PRAVASTATIN SODIUM
     Dosage: UNK
  9. METROGEL [Concomitant]
     Active Substance: METRONIDAZOLE
     Dosage: UNK
  10. REFRESH [Concomitant]
     Active Substance: UNSPECIFIED INGREDIENT
     Dosage: UNK
  11. BIOTENE [Concomitant]
     Active Substance: SODIUM MONOFLUOROPHOSPHATE
     Dosage: UNK
  12. VITAMIN D3 [Concomitant]
     Active Substance: CHOLECALCIFEROL
     Dosage: UNK
  13. TYLENOL [Concomitant]
     Active Substance: ACETAMINOPHEN
     Dosage: UNK
  14. RAMIPRIL. [Concomitant]
     Active Substance: RAMIPRIL
     Dosage: UNK
  15. MYLANTA [Concomitant]
     Active Substance: ALUMINUM HYDROXIDE\MAGNESIUM HYDROXIDE\SIMETHICONE
  16. POLYETHYLENE GLYCOL [Concomitant]
     Active Substance: POLYETHYLENE GLYCOLS
     Dosage: UNK
  17. ASA [Concomitant]
     Active Substance: ASPIRIN
     Dosage: UNK
  18. OMEPRAZOLE. [Concomitant]
     Active Substance: OMEPRAZOLE
     Dosage: UNK
  19. BOTOX [Suspect]
     Active Substance: ONABOTULINUMTOXINA
     Indication: PAIN
     Dosage: UNK
     Dates: start: 20150224
  20. OXYBUTYNIN [Concomitant]
     Active Substance: OXYBUTYNIN
     Dosage: UNK

REACTIONS (1)
  - Drug ineffective [Unknown]
